FAERS Safety Report 17182427 (Version 1)
Quarter: 2019Q4

REPORT INFORMATION
  Report Type: Spontaneous
  Country: CA (occurrence: CA)
  Receive Date: 20191220
  Receipt Date: 20191220
  Transmission Date: 20200122
  Serious: Yes (Disabling)
  Sender: FDA-Public Use
  Company Number: CA-TEVA-2019-CA-1155222

PATIENT
  Age: 74 Year
  Sex: Male

DRUGS (1)
  1. TAMSULOSIN CR [Suspect]
     Active Substance: TAMSULOSIN
     Indication: HYPERTENSION
     Dosage: .4 MILLIGRAM DAILY;
     Route: 048

REACTIONS (5)
  - Dizziness [Recovered/Resolved]
  - Epistaxis [Recovered/Resolved]
  - Rhinorrhoea [Recovered/Resolved]
  - Syncope [Recovered/Resolved]
  - Pruritus [Recovered/Resolved]
